FAERS Safety Report 11260762 (Version 1)
Quarter: 2015Q3

REPORT INFORMATION
  Report Type: Spontaneous
  Country: US (occurrence: US)
  Receive Date: 20150710
  Receipt Date: 20150710
  Transmission Date: 20151125
  Serious: No
  Sender: FDA-Public Use
  Company Number: US-PURDUE-USA-2014-0119395

PATIENT
  Age: 28 Year
  Sex: Female

DRUGS (1)
  1. BUTRANS [Suspect]
     Active Substance: BUPRENORPHINE
     Indication: PAIN
     Dosage: 20 MCG/HR, WEEKLY
     Route: 062
     Dates: start: 201408

REACTIONS (8)
  - Headache [Unknown]
  - Drug withdrawal syndrome [Unknown]
  - Product physical issue [Unknown]
  - Myalgia [Unknown]
  - Vomiting [Unknown]
  - Pain [Unknown]
  - Product adhesion issue [Unknown]
  - Nausea [Unknown]

NARRATIVE: CASE EVENT DATE: 20141124
